FAERS Safety Report 7190086-6 (Version None)
Quarter: 2010Q4

REPORT INFORMATION
  Report Type: 
  Country: None (occurrence: None)
  Receive Date: 20101223
  Receipt Date: 20101221
  Transmission Date: 20110411
  Serious: Yes (Other)
  Sender: FDA-Public Use
  Company Number: US-PFIZER INC-2010176907

PATIENT
  Sex: Female
  Weight: 86.168 kg

DRUGS (10)
  1. CHANTIX [Suspect]
     Indication: SMOKING CESSATION THERAPY
     Dosage: 0.5 MG, 1X/DAY
     Route: 048
     Dates: start: 20100813
  2. CHANTIX [Suspect]
     Dosage: 1 MG, 2X/DAY
     Route: 048
     Dates: start: 20100801, end: 20101013
  3. TRAZODONE [Suspect]
     Indication: SLEEP DISORDER
     Dosage: 200 MG (TWO 100 MG TABLETS), DAILY AT NIGHT
  4. TRAZODONE [Suspect]
     Indication: ANXIETY
  5. EFFEXOR XR [Concomitant]
     Dosage: UNK
  6. VICODIN [Concomitant]
     Indication: PAIN
     Dosage: 500 MG, AS NEEDED
  7. TRAMADOL [Concomitant]
     Dosage: 50 MG, 2X/DAY
  8. GEODON [Concomitant]
     Dosage: 40 MG, 2X/DAY
  9. LIPITOR [Concomitant]
     Indication: BLOOD CHOLESTEROL INCREASED
     Dosage: UNK
  10. GABAPENTIN [Concomitant]
     Indication: HOT FLUSH
     Dosage: 300 MG, 2X/DAY

REACTIONS (3)
  - CARDIAC FLUTTER [None]
  - SOMNOLENCE [None]
  - SUICIDAL IDEATION [None]
